FAERS Safety Report 12583118 (Version 2)
Quarter: 2016Q3

REPORT INFORMATION
  Report Type: Spontaneous
  Country: US (occurrence: US)
  Receive Date: 20160722
  Receipt Date: 20160808
  Transmission Date: 20161109
  Serious: Yes (Other)
  Sender: FDA-Public Use
  Company Number: US-AMGEN-USASP2016091999

PATIENT
  Age: 2 Year
  Sex: Male
  Weight: 12 kg

DRUGS (13)
  1. DIPHENHYDRAMINE. [Concomitant]
     Active Substance: DIPHENHYDRAMINE
  2. EPINEPHRINE. [Concomitant]
     Active Substance: EPINEPHRINE
  3. BLINCYTO [Suspect]
     Active Substance: BLINATUMOMAB
     Indication: ACUTE LYMPHOCYTIC LEUKAEMIA
     Dosage: 8 MUG, UNK
     Route: 065
  4. ACETAMINOPHEN. [Concomitant]
     Active Substance: ACETAMINOPHEN
  5. PREDNISONE. [Suspect]
     Active Substance: PREDNISONE
     Indication: PRODUCT USED FOR UNKNOWN INDICATION
     Dosage: UNK
     Route: 065
  6. ONDANSETRON [Concomitant]
     Active Substance: ONDANSETRON
  7. AMLODIPINE [Concomitant]
     Active Substance: AMLODIPINE BESYLATE
     Dosage: 1.5 MG, QD
  8. FAMOTIDINE. [Concomitant]
     Active Substance: FAMOTIDINE
  9. MEPERIDINE [Concomitant]
     Active Substance: MEPERIDINE
  10. CEFEPIME [Concomitant]
     Active Substance: CEFEPIME HYDROCHLORIDE
     Dosage: 50 MG/KG, UNK
  11. CYTARABINE. [Suspect]
     Active Substance: CYTARABINE
     Indication: PRODUCT USED FOR UNKNOWN INDICATION
     Route: 065
  12. SODIUM CHLORIDE. [Concomitant]
     Active Substance: SODIUM CHLORIDE
  13. METHYLPREDNISOLONE SODIUM SUCCINATE. [Concomitant]
     Active Substance: METHYLPREDNISOLONE SODIUM SUCCINATE

REACTIONS (15)
  - Alopecia [Unknown]
  - Sinusitis [Unknown]
  - Off label use [Unknown]
  - Pyrexia [Unknown]
  - Blood count abnormal [Unknown]
  - Systemic inflammatory response syndrome [Recovered/Resolved]
  - Nasal congestion [Unknown]
  - Hyperchromasia [Unknown]
  - Tachycardia [Unknown]
  - Candida infection [Recovered/Resolved]
  - Acute lymphocytic leukaemia recurrent [Unknown]
  - Peripheral swelling [Recovered/Resolved]
  - Oral candidiasis [Recovered/Resolved]
  - Hypokalaemia [Unknown]
  - Sepsis [Unknown]

NARRATIVE: CASE EVENT DATE: 201602
